FAERS Safety Report 25312439 (Version 1)
Quarter: 2025Q2

REPORT INFORMATION
  Report Type: Spontaneous
  Country: US (occurrence: None)
  Receive Date: 20250513
  Receipt Date: 20250513
  Transmission Date: 20250717
  Serious: No
  Sender: FDA-CTU
  Company Number: None

PATIENT
  Age: 80 Year
  Sex: Male
  Weight: 72.57 kg

DRUGS (11)
  1. AMIODARONE HYDROCHLORIDE [Suspect]
     Active Substance: AMIODARONE HYDROCHLORIDE
     Indication: Atrial fibrillation
     Dosage: FREQUENCY : TWICE A DAY;?
     Route: 048
     Dates: start: 20241115, end: 20241125
  2. APIXABAN [Concomitant]
     Active Substance: APIXABAN
  3. METOPROLOL SUCCINATE [Concomitant]
     Active Substance: METOPROLOL SUCCINATE
  4. PRAVASTATIN [Concomitant]
     Active Substance: PRAVASTATIN
  5. DORZOLAMIDE 2% OPHTHALMIC SOLUTION [Concomitant]
  6. TIMOLOL 0.5% OPHTHALMIC SOLUTION [Concomitant]
  7. TRAVAPROST 0.004% DROP [Concomitant]
  8. B 12 1000 MCG [Concomitant]
  9. B COMPLEX WITH C [Concomitant]
  10. VIT. D3 (1,000 UNITS) [Concomitant]
  11. VIT. D3 (1,000 UNITS) [Concomitant]

REACTIONS (3)
  - Balance disorder [None]
  - Nausea [None]
  - Vomiting [None]

NARRATIVE: CASE EVENT DATE: 20241115
